FAERS Safety Report 12870310 (Version 2)
Quarter: 2016Q4

REPORT INFORMATION
  Report Type: Spontaneous
  Country: JP (occurrence: JP)
  Receive Date: 20161021
  Receipt Date: 20161027
  Transmission Date: 20170207
  Serious: Yes (Death, Other)
  Sender: FDA-Public Use
  Company Number: JP-GLAXOSMITHKLINE-JP2016JPN153173

PATIENT
  Age: 86 Year
  Sex: Female

DRUGS (4)
  1. FYCOMPA [Concomitant]
     Active Substance: PERAMPANEL
     Dosage: 1 DF, TID
  2. ONON CAPSULES [Concomitant]
     Dosage: 2 DF, BID
  3. SERETIDE [Suspect]
     Active Substance: FLUTICASONE PROPIONATE\SALMETEROL XINAFOATE
     Dosage: 50 ?G, UNK
     Route: 055
     Dates: end: 20160814
  4. DEPAKENE [Concomitant]
     Active Substance: VALPROIC ACID
     Dosage: 1 G, TID

REACTIONS (1)
  - Pneumonia [Fatal]

NARRATIVE: CASE EVENT DATE: 20160818
